FAERS Safety Report 23066252 (Version 1)
Quarter: 2023Q4

REPORT INFORMATION
  Report Type: Other
  Country: CN (occurrence: None)
  Receive Date: 20231015
  Receipt Date: 20231015
  Transmission Date: 20240109
  Serious: Yes (Other)
  Sender: FDA-Public Use
  Company Number: CN-Square-000177

PATIENT
  Age: 43 Year
  Sex: Male

DRUGS (1)
  1. CALCIUM ACETATE [Suspect]
     Active Substance: CALCIUM ACETATE
     Indication: Product used for unknown indication

REACTIONS (1)
  - Nephrolithiasis [Unknown]
